FAERS Safety Report 7737470-7 (Version None)
Quarter: 2011Q3

REPORT INFORMATION
  Report Type: 
  Country: None (occurrence: None)
  Receive Date: 20110908
  Receipt Date: 20110805
  Transmission Date: 20111222
  Serious: Yes (Other)
  Sender: FDA-Public Use
  Company Number: US-GLAXOSMITHKLINE-A0940534A

PATIENT
  Age: 51 Year
  Sex: Female

DRUGS (2)
  1. DILANTIN [Suspect]
     Indication: CONVULSION
     Route: 065
  2. LAMICTAL [Suspect]
     Indication: CONVULSION
     Dosage: 25MG UNKNOWN
     Route: 048
     Dates: start: 20110602

REACTIONS (2)
  - CONVULSION [None]
  - DRUG LEVEL DECREASED [None]
